FAERS Safety Report 4511780-9 (Version None)
Quarter: 2004Q4

REPORT INFORMATION
  Report Type: 
  Country: None (occurrence: None)
  Receive Date: 20041123
  Receipt Date: 20041123
  Transmission Date: 20050328
  Serious: Yes (Other)
  Sender: FDA-Public Use
  Company Number: None

PATIENT
  Age: 61 Year
  Sex: Female
  Weight: 84.8 kg

DRUGS (16)
  1. PILOCARPINE [Suspect]
  2. OMEPRAZOLE [Concomitant]
  3. CONJUGATED ESTROGEN [Concomitant]
  4. DOCUSATE NA [Concomitant]
  5. BUPROPION HCL [Concomitant]
  6. LIDOCAINE [Concomitant]
  7. CITALOPRAM HYDROBROMIDE [Concomitant]
  8. ATOMOXETINE [Concomitant]
  9. FOSINOPRIL SODIUM [Concomitant]
  10. GABAPENTIN [Concomitant]
  11. CAPSAICIN [Concomitant]
  12. CLOBETASOL PROPIONATE [Concomitant]
  13. PILOCARPINE HCL [Concomitant]
  14. SIMVASTATIN [Concomitant]
  15. CELECOXIB [Concomitant]
  16. NYSTATIN [Concomitant]

REACTIONS (2)
  - DIZZINESS [None]
  - NAUSEA [None]
